FAERS Safety Report 25475887 (Version 4)
Quarter: 2025Q3

REPORT INFORMATION
  Report Type: Spontaneous
  Country: US (occurrence: US)
  Receive Date: 20250625
  Receipt Date: 20250813
  Transmission Date: 20251021
  Serious: No
  Sender: JOHNSON AND JOHNSON
  Company Number: US-JNJFOC-20250620340

PATIENT
  Age: 53 Year

DRUGS (1)
  1. RISPERDAL [Suspect]
     Active Substance: RISPERIDONE
     Indication: Product used for unknown indication
     Route: 048
     Dates: start: 202505

REACTIONS (4)
  - Headache [Unknown]
  - Dyspnoea [Unknown]
  - Rash [Unknown]
  - Palpitations [Unknown]

NARRATIVE: CASE EVENT DATE: 20250501
